FAERS Safety Report 9690549 (Version 1)
Quarter: 2013Q4

REPORT INFORMATION
  Report Type: Spontaneous
  Country: US (occurrence: US)
  Receive Date: 20131115
  Receipt Date: 20131115
  Transmission Date: 20140711
  Serious: No
  Sender: FDA-Public Use
  Company Number: US-PFIZER INC-2013326436

PATIENT
  Age: 63 Year
  Sex: Female
  Weight: 76.19 kg

DRUGS (2)
  1. LYRICA [Suspect]
     Indication: NEURALGIA
     Dosage: 150 MG, 2X/DAY
     Route: 048
     Dates: start: 20131016
  2. ROPINIROLE [Concomitant]
     Dosage: UNK

REACTIONS (1)
  - Alopecia [Unknown]
